FAERS Safety Report 15914362 (Version 1)
Quarter: 2019Q1

REPORT INFORMATION
  Report Type: Spontaneous
  Country: US (occurrence: US)
  Receive Date: 20190204
  Receipt Date: 20190204
  Transmission Date: 20190417
  Serious: No
  Sender: FDA-Public Use
  Company Number: US-ABBVIE-18K-163-2472121-00

PATIENT
  Sex: Female

DRUGS (1)
  1. HUMIRA [Suspect]
     Active Substance: ADALIMUMAB
     Indication: HIDRADENITIS
     Route: 058

REACTIONS (8)
  - Impaired work ability [Unknown]
  - Hidradenitis [Unknown]
  - Pain [Unknown]
  - Dysstasia [Unknown]
  - Visual impairment [Unknown]
  - Malaise [Unknown]
  - Vomiting [Unknown]
  - Depression [Unknown]
